FAERS Safety Report 8766621 (Version 1)
Quarter: 2012Q4

REPORT INFORMATION
  Report Type: 
  Country: US (occurrence: US)
  Receive Date: 20120904
  Receipt Date: 20120904
  Transmission Date: 20130627
  Serious: Yes (Hospitalization)
  Sender: FDA-Public Use
  Company Number: US-JNJFOC-20120813820

PATIENT
  Age: 67 Year
  Sex: Female
  Weight: 50.1 kg

DRUGS (9)
  1. DOXORUBICIN [Suspect]
     Indication: LIPOSARCOMA METASTATIC
     Dosage: cycle 1
     Route: 042
     Dates: start: 20120807
  2. LEVOTHYROXINE [Concomitant]
     Route: 065
  3. HYDROMORPHONE [Concomitant]
     Route: 065
  4. LORATADINE [Concomitant]
     Route: 065
  5. ONDANSETRON [Concomitant]
     Route: 065
  6. LORAZEPAM [Concomitant]
     Route: 065
  7. NITROFURANTOIN [Concomitant]
     Route: 065
  8. SERTRALINE [Concomitant]
     Route: 065
  9. CITALOPRAM HYDROBROMIDE [Concomitant]
     Route: 065

REACTIONS (3)
  - Febrile neutropenia [Recovering/Resolving]
  - Device related infection [Unknown]
  - Off label use [Unknown]
